FAERS Safety Report 5156877-8 (Version None)
Quarter: 2006Q4

REPORT INFORMATION
  Report Type: 
  Country: None (occurrence: None)
  Receive Date: 20061122
  Receipt Date: 20061117
  Transmission Date: 20070319
  Serious: Yes (Other)
  Sender: FDA-Public Use
  Company Number: CA-ABBOTT-06P-028-0350776-00

PATIENT
  Sex: Male

DRUGS (2)
  1. BIAXIN XL [Suspect]
     Indication: URINARY TRACT INFECTION
     Route: 048
     Dates: start: 20061111, end: 20061113
  2. LONG-ACTING INSULIN [Concomitant]
     Indication: DRUG USE FOR UNKNOWN INDICATION

REACTIONS (2)
  - HYPOGLYCAEMIA [None]
  - LOSS OF CONSCIOUSNESS [None]
